FAERS Safety Report 4712706-5 (Version None)
Quarter: 2005Q3

REPORT INFORMATION
  Report Type: 
  Country: None (occurrence: None)
  Receive Date: 20050706
  Receipt Date: 20050310
  Transmission Date: 20060218
  Serious: Yes (Hospitalization)
  Sender: FDA-Public Use
  Company Number: 0205005

PATIENT
  Age: 43 Year
  Sex: Male
  Weight: 81.6475 kg

DRUGS (1)
  1. DEPODUR [Suspect]
     Indication: PAIN
     Dosage: (15 MG, ONCE), EPIDURAL
     Route: 008

REACTIONS (1)
  - HYPOTENSION [None]
